FAERS Safety Report 5891068-4 (Version None)
Quarter: 2008Q3

REPORT INFORMATION
  Report Type: 
  Country: None (occurrence: None)
  Receive Date: 20080916
  Receipt Date: 20080916
  Transmission Date: 20090109
  Serious: Yes (Hospitalization)
  Sender: FDA-Public Use
  Company Number: None

PATIENT
  Sex: Female
  Weight: 78.8 kg

DRUGS (2)
  1. IRESSA [Suspect]
     Indication: NON-SMALL CELL LUNG CANCER
     Dosage: 1000MG QD X 14 DAYS PO
     Route: 048
     Dates: start: 20080718
  2. IRESSA [Suspect]
     Indication: NON-SMALL CELL LUNG CANCER
     Dosage: 500MG QD X 14 DAYS PO
     Route: 048
     Dates: start: 20080910

REACTIONS (2)
  - NAUSEA [None]
  - VOMITING [None]
